FAERS Safety Report 6180617-7 (Version None)
Quarter: 2009Q2

REPORT INFORMATION
  Report Type: 
  Country: None (occurrence: None)
  Receive Date: 20090506
  Receipt Date: 20090427
  Transmission Date: 20091009
  Serious: Yes (Hospitalization)
  Sender: FDA-Public Use
  Company Number: PHHO2008DE05923

PATIENT
  Sex: Male
  Weight: 64.5 kg

DRUGS (9)
  1. RAD 666 RAD+TAB [Suspect]
     Indication: CARCINOID TUMOUR
     Dosage: 10 MG
     Route: 048
     Dates: start: 20080410, end: 20080509
  2. SANDOSTATIN LAR [Suspect]
     Indication: CARCINOID TUMOUR
     Dosage: CODE NOT BROKEN
     Route: 048
     Dates: start: 20080410, end: 20080509
  3. AMARYL [Concomitant]
     Dosage: UNK
     Dates: start: 20030601
  4. NEXIUM [Concomitant]
     Dosage: UNK
     Dates: start: 20060401
  5. OPIUM TINCTURE [Concomitant]
     Dosage: UNK
     Dates: start: 20060601
  6. ESOMEPRAZOLE MAGNESIUM [Concomitant]
  7. GLIMEPIRIDE [Concomitant]
  8. TORSEMIDE [Concomitant]
  9. SPIRONOLACTONE [Concomitant]

REACTIONS (5)
  - BLADDER IRRIGATION [None]
  - BLADDER TAMPONADE [None]
  - BLOOD URINE PRESENT [None]
  - POSTRENAL FAILURE [None]
  - URINARY BLADDER HAEMORRHAGE [None]
